FAERS Safety Report 4583062-0 (Version None)
Quarter: 2005Q1

REPORT INFORMATION
  Report Type: 
  Country: None (occurrence: None)
  Receive Date: 20050125
  Receipt Date: 20041001
  Transmission Date: 20050727
  Serious: No
  Sender: FDA-Public Use
  Company Number: USA041080045

PATIENT
  Age: 75 Year
  Sex: Male

DRUGS (1)
  1. FORTEO [Suspect]
     Indication: OSTEOPOROSIS
     Dates: start: 20040729

REACTIONS (5)
  - ANOREXIA [None]
  - ASTHENIA [None]
  - CONSTIPATION [None]
  - NAUSEA [None]
  - OEDEMA PERIPHERAL [None]
